FAERS Safety Report 13742271 (Version 1)
Quarter: 2017Q3

REPORT INFORMATION
  Report Type: Spontaneous
  Country: FR (occurrence: FR)
  Receive Date: 20170711
  Receipt Date: 20170711
  Transmission Date: 20171127
  Serious: Yes (Hospitalization)
  Sender: FDA-Public Use
  Company Number: PHHY2011FR12137

PATIENT
  Age: 75 Year
  Sex: Male

DRUGS (6)
  1. CARTEOLOL [Suspect]
     Active Substance: CARTEOLOL
     Dosage: 1 GTT, QD
     Route: 047
     Dates: start: 20100519, end: 20100519
  2. SOLUPRED [Concomitant]
     Active Substance: PREDNISOLONE
     Dosage: UNK
  3. BRICANYL [Concomitant]
     Active Substance: TERBUTALINE SULFATE
     Dosage: UNK
  4. ATROVENT [Concomitant]
     Active Substance: IPRATROPIUM BROMIDE
     Dosage: UNK
  5. ADRENALINE [Concomitant]
     Active Substance: EPINEPHRINE
  6. SERESTA [Concomitant]
     Active Substance: OXAZEPAM

REACTIONS (8)
  - Chronic obstructive pulmonary disease [Recovered/Resolved]
  - Right ventricular failure [Recovered/Resolved]
  - Hypoventilation [Recovered/Resolved]
  - Dyspnoea [Recovered/Resolved]
  - Respiratory acidosis [Recovered/Resolved]
  - Swelling [Recovered/Resolved]
  - Leukocytosis [Recovered/Resolved]
  - Hepatojugular reflux [Recovered/Resolved]

NARRATIVE: CASE EVENT DATE: 20100519
